FAERS Safety Report 9882776 (Version 2)
Quarter: 2014Q2

REPORT INFORMATION
  Report Type: Report from Study
  Country: US (occurrence: US)
  Receive Date: 20140207
  Receipt Date: 20140424
  Transmission Date: 20141212
  Serious: Yes (Other)
  Sender: FDA-Public Use
  Company Number: US-ABBVIE-14P-163-1196224-00

PATIENT
  Sex: Female
  Weight: 54.03 kg

DRUGS (6)
  1. HUMIRA [Suspect]
     Indication: CROHN^S DISEASE
  2. HUMIRA [Suspect]
     Dosage: TWO WEEKS AFTER 160 MG DOSE
     Dates: start: 2011, end: 2011
  3. HUMIRA [Suspect]
     Dosage: FOUR WEEKS AFTER 160 MG DOSE
     Dates: start: 2011, end: 201201
  4. CHLORTHALIDONE [Concomitant]
     Indication: HYPERTENSION
  5. CLONIDINE [Concomitant]
     Indication: HYPERTENSION
  6. VITAMIN D [Concomitant]
     Indication: VITAMIN SUPPLEMENTATION

REACTIONS (5)
  - Precancerous cells present [Not Recovered/Not Resolved]
  - Large intestine polyp [Recovered/Resolved]
  - Colon cancer [Unknown]
  - Large intestinal stenosis [Unknown]
  - Crohn^s disease [Not Recovered/Not Resolved]
